FAERS Safety Report 8616745-3 (Version None)
Quarter: 2012Q3

REPORT INFORMATION
  Report Type: 
  Country: None (occurrence: None)
  Receive Date: 20120823
  Receipt Date: 20120806
  Transmission Date: 20120928
  Serious: No
  Sender: FDA-Public Use
  Company Number: US-009507513-1208USA003129

PATIENT

DRUGS (1)
  1. TICE BCG [Suspect]
     Indication: BLADDER CANCER
     Dosage: UNK
     Dates: start: 20120719

REACTIONS (3)
  - CELLULITIS [None]
  - ACCIDENTAL EXPOSURE [None]
  - ERYTHEMA [None]
